FAERS Safety Report 4523359-3 (Version None)
Quarter: 2004Q4

REPORT INFORMATION
  Report Type: 
  Country: None (occurrence: None)
  Receive Date: 20041209
  Receipt Date: 20041209
  Transmission Date: 20050328
  Serious: Yes (Life-Threatening, Hospitalization)
  Sender: FDA-Public Use
  Company Number: None

PATIENT
  Sex: Female
  Weight: 79.3795 kg

DRUGS (1)
  1. CYCLOBENZAPRINE  10MG   WATSON LAB [Suspect]
     Indication: MUSCLE SPASMS
     Dosage: 1 TAB  ONE TIME ORAL
     Route: 048
     Dates: start: 20041207, end: 20041207

REACTIONS (1)
  - URTICARIA [None]
